FAERS Safety Report 5808287-5 (Version None)
Quarter: 2008Q3

REPORT INFORMATION
  Report Type: 
  Country: None (occurrence: None)
  Receive Date: 20080710
  Receipt Date: 20080602
  Transmission Date: 20090109
  Serious: Yes (Hospitalization)
  Sender: FDA-Public Use
  Company Number: 2008001284

PATIENT
  Age: 67 Year
  Weight: 71 kg

DRUGS (11)
  1. ERLOTINIB (ERLOTINIB) (TABLET) (ERLOTINIB) [Suspect]
     Indication: OESOPHAGEAL CARCINOMA
     Dosage: (100 MG), ORAL
     Route: 048
     Dates: start: 20080423
  2. BEVACIZUMAB (INJECTION FOR INFUSION) [Suspect]
     Dosage: (1200 MG), INTRAVENOUS
     Route: 042
     Dates: start: 20080423
  3. PACLITAXEL [Suspect]
     Dosage: (382 MG), INTRAVENOUS
     Route: 042
     Dates: start: 20080423
  4. CARBOPLATIN [Suspect]
     Dosage: (455 MG), INTRAVENOUS
     Route: 042
     Dates: start: 20080423
  5. 5 FLOUROURACIL (FLUOROURACIL) (INJECTION FOR INFUSION) [Suspect]
     Dosage: (3000), INTRAVENOUS
     Route: 042
     Dates: start: 20080423
  6. GLIPIZIDE [Concomitant]
  7. BENAZEPRIL HCL [Concomitant]
  8. PLAVIX [Concomitant]
  9. METOPROLOL TARTRATE [Concomitant]
  10. SERTRALINE [Concomitant]
  11. ZOFRAN [Concomitant]

REACTIONS (13)
  - ABDOMINAL DISCOMFORT [None]
  - AORTIC STENOSIS [None]
  - ASTHENIA [None]
  - ATRIAL FIBRILLATION [None]
  - DEHYDRATION [None]
  - DIZZINESS [None]
  - EJECTION FRACTION DECREASED [None]
  - GAIT DISTURBANCE [None]
  - HICCUPS [None]
  - HYPOTENSION [None]
  - NAUSEA [None]
  - PALPITATIONS [None]
  - VOMITING [None]
